FAERS Safety Report 9079756 (Version 30)
Quarter: 2017Q2

REPORT INFORMATION
  Report Type: Spontaneous
  Country: US (occurrence: US)
  Receive Date: 20130215
  Receipt Date: 20170420
  Transmission Date: 20170830
  Serious: Yes (Hospitalization, Other)
  Sender: FDA-Public Use
  Company Number: US-GLAXOSMITHKLINE-A1012260A

PATIENT
  Age: 72 Year
  Sex: Female
  Weight: 59 kg

DRUGS (25)
  1. FLOLAN [Suspect]
     Active Substance: EPOPROSTENOL SODIUM
     Indication: SYSTEMIC SCLERODERMA
     Dosage: UNK
     Dates: start: 20060115
  2. FLOLAN [Suspect]
     Active Substance: EPOPROSTENOL SODIUM
     Dosage: UNK
     Dates: start: 20060115
  3. FLOLAN [Suspect]
     Active Substance: EPOPROSTENOL SODIUM
     Dosage: 32 DF, CO
  4. FLOLAN [Suspect]
     Active Substance: EPOPROSTENOL SODIUM
     Dosage: UNK, U
  5. FLOLAN [Suspect]
     Active Substance: EPOPROSTENOL SODIUM
     Dosage: 32 NG/KG/MIN (CONCENTRATION 30,000 NG/ML, PUMP RATE 85 ML/DAY, VIAL STRENGTH 1.5 MG) CO
     Dates: start: 20160113
  6. REVATIO [Concomitant]
     Active Substance: SILDENAFIL CITRATE
  7. FLOLAN [Suspect]
     Active Substance: EPOPROSTENOL SODIUM
     Indication: PULMONARY HYPERTENSION
     Dosage: UNK
     Dates: start: 20060115
  8. FLOLAN [Suspect]
     Active Substance: EPOPROSTENOL SODIUM
     Dosage: 31 NG/KG/MIN (CONCENTRATION 30,000 NG/ML, PUMP RATE 83 ML/DAY, VIAL STRENGTH 1.5 MG) CO
  9. FLOLAN [Suspect]
     Active Substance: EPOPROSTENOL SODIUM
     Dosage: 32 NG/KG/MIN, CO
     Route: 042
  10. FLOLAN [Suspect]
     Active Substance: EPOPROSTENOL SODIUM
     Dosage: 30 NG/KG/MIN
     Dates: start: 20060113
  11. FLOLAN [Suspect]
     Active Substance: EPOPROSTENOL SODIUM
     Dosage: 30 NG/KG/MIN
     Dates: start: 20060113
  12. FLOLAN [Suspect]
     Active Substance: EPOPROSTENOL SODIUM
     Dosage: UNK
  13. FLOLAN [Suspect]
     Active Substance: EPOPROSTENOL SODIUM
     Dosage: 32 NG/KG/MIN
     Dates: start: 20060113
  14. FLOLAN [Suspect]
     Active Substance: EPOPROSTENOL SODIUM
     Indication: PULMONARY HYPERTENSION
  15. POTASSIUM CHLORIDE. [Concomitant]
     Active Substance: POTASSIUM CHLORIDE
  16. FLOLAN [Suspect]
     Active Substance: EPOPROSTENOL SODIUM
     Dosage: 30 NG/KG/MIN (CONCENTRATION 30,000 NG/ML, PUMP RATE 80 ML/DAY, VIAL STRENGTH 1.5 MG), CO
     Route: 042
     Dates: start: 20060115
  17. FLOLAN [Suspect]
     Active Substance: EPOPROSTENOL SODIUM
     Dosage: 30 NG/KG/MIN
     Dates: start: 20060113
  18. FLOLAN [Suspect]
     Active Substance: EPOPROSTENOL SODIUM
     Dosage: 30 NG/KG/MIN
     Route: 042
     Dates: start: 20060113
  19. FLOLAN [Suspect]
     Active Substance: EPOPROSTENOL SODIUM
     Dosage: DOSE:30 NG/KG/MIN CONTINUOUSLY;CONCENTRATION:30,000 NG/ML;VIAL STRENGTH:1.5MG;PUMP RATE:80ML/DAY
     Route: 042
     Dates: start: 20060115
  20. FLOLAN [Suspect]
     Active Substance: EPOPROSTENOL SODIUM
     Dosage: 31 NG/KG/MIN (CONCENTRATION 30,000 NG/ML, PUMP RATE 83 ML/DAY, VIAL STRENGTH 1.5 MG) CO
     Dates: start: 20160113
  21. COUMADIN [Concomitant]
     Active Substance: WARFARIN SODIUM
  22. FLOLAN [Suspect]
     Active Substance: EPOPROSTENOL SODIUM
     Indication: PULMONARY ARTERIAL HYPERTENSION
     Dosage: UNK
     Dates: start: 20060115
  23. FLOLAN [Suspect]
     Active Substance: EPOPROSTENOL SODIUM
     Indication: PULMONARY HYPERTENSION
     Dosage: UNK
     Dates: start: 20060115
  24. FLOLAN [Suspect]
     Active Substance: EPOPROSTENOL SODIUM
     Indication: COR PULMONALE CHRONIC
     Dosage: 29 NG/KG/MINCONTINUOUSLYDOSE: 30 NG/KG/MIN CONTINUOUSLYCONCENTRATION 30,000 NG/MLVIAL STRENGTH:[...]
     Route: 042
     Dates: start: 20060113
  25. FLOLAN [Suspect]
     Active Substance: EPOPROSTENOL SODIUM
     Dosage: 30 NG/KG/MIN
     Dates: start: 20060113

REACTIONS (27)
  - Swelling [Unknown]
  - Weight increased [Recovered/Resolved]
  - Fatigue [Not Recovered/Not Resolved]
  - Catheter site swelling [Unknown]
  - Infection [Unknown]
  - Catheter site rash [Unknown]
  - Catheter site erythema [Unknown]
  - Pulmonary arterial hypertension [Recovered/Resolved]
  - Catheter site pain [Not Recovered/Not Resolved]
  - Asthma [Recovered/Resolved]
  - Device related infection [Unknown]
  - Herpes zoster [Unknown]
  - Nasal congestion [Recovered/Resolved]
  - Hospitalisation [Unknown]
  - Gastrointestinal haemorrhage [Unknown]
  - Viral upper respiratory tract infection [Not Recovered/Not Resolved]
  - Ear discomfort [Recovered/Resolved]
  - Productive cough [Not Recovered/Not Resolved]
  - Pneumonia [Recovered/Resolved]
  - Dyspnoea [Unknown]
  - Intestinal obstruction [Unknown]
  - Fluid retention [Unknown]
  - Central venous catheterisation [Unknown]
  - Influenza [Unknown]
  - Upper respiratory tract infection [Not Recovered/Not Resolved]
  - Cough [Unknown]
  - Drug ineffective [Not Recovered/Not Resolved]

NARRATIVE: CASE EVENT DATE: 20160223
